FAERS Safety Report 11114695 (Version 1)
Quarter: 2015Q2

REPORT INFORMATION
  Report Type: Spontaneous
  Country: GB (occurrence: None)
  Receive Date: 20150512
  Receipt Date: 20150512
  Transmission Date: 20150821
  Serious: Yes (Other)
  Sender: FDA-Public Use
  Company Number: GB-DEXPHARM-20150301

PATIENT
  Age: 26 Year
  Sex: Male

DRUGS (2)
  1. DICLOFENAC [Suspect]
     Active Substance: DICLOFENAC
     Indication: BACK PAIN
     Dosage: DOSAGE TEXT: INTENDED DURATION: 1 WEEK?SEP DOSAGES/ INTERVAL: 1 DAYS
  2. NAPROXEN. [Suspect]
     Active Substance: NAPROXEN
     Dosage: DOSE:  1 DF DOSAGE FORM   SEP. DOSAGES/INTRVAL: 3 IN 1 DAYS

REACTIONS (4)
  - Abdominal pain [None]
  - Groin pain [None]
  - Dysuria [None]
  - Incontinence [None]
